FAERS Safety Report 13310038 (Version 1)
Quarter: 2017Q1

REPORT INFORMATION
  Report Type: Spontaneous
  Country: US (occurrence: US)
  Receive Date: 20170308
  Receipt Date: 20170308
  Transmission Date: 20170428
  Serious: Yes (Hospitalization)
  Sender: FDA-Public Use
  Company Number: None

PATIENT
  Age: 61 Year
  Sex: Male
  Weight: 111.3 kg

DRUGS (1)
  1. DABIGATRAN [Suspect]
     Active Substance: DABIGATRAN
     Indication: ATRIAL FIBRILLATION
     Route: 048
     Dates: start: 20140528, end: 20170125

REACTIONS (4)
  - Melaena [None]
  - Gastric ulcer [None]
  - Gastric haemorrhage [None]
  - Burning sensation [None]

NARRATIVE: CASE EVENT DATE: 20170125
